FAERS Safety Report 10527092 (Version 1)
Quarter: 2014Q4

REPORT INFORMATION
  Report Type: Spontaneous
  Country: US (occurrence: US)
  Receive Date: 20141020
  Receipt Date: 20141020
  Transmission Date: 20150528
  Serious: Yes (Disabling)
  Sender: FDA-Public Use
  Company Number: US-AUROBINDO-AUR-APL-2014-10730

PATIENT
  Sex: Female

DRUGS (1)
  1. TRAMADOL 50MG [Suspect]
     Active Substance: TRAMADOL
     Indication: PAIN
     Dosage: 50 MG, UNK
     Route: 065

REACTIONS (2)
  - Drug ineffective [Unknown]
  - Activities of daily living impaired [Unknown]
